FAERS Safety Report 5578293-7 (Version None)
Quarter: 2007Q4

REPORT INFORMATION
  Report Type: 
  Country: None (occurrence: None)
  Receive Date: 20071231
  Receipt Date: 20071221
  Transmission Date: 20080405
  Serious: Yes (Other)
  Sender: FDA-Public Use
  Company Number: NL-PFIZER INC-2007107784

PATIENT
  Sex: Female

DRUGS (5)
  1. DEPO-PROVERA SUSPENSION/INJ [Suspect]
     Dosage: FREQ:FIRST INJECTION
     Route: 030
     Dates: start: 20070201, end: 20070201
  2. DEPO-PROVERA SUSPENSION/INJ [Suspect]
     Route: 030
     Dates: start: 20070501, end: 20070501
  3. DEPO-PROVERA SUSPENSION/INJ [Suspect]
     Route: 030
     Dates: start: 20070901, end: 20070901
  4. DEPO-PROVERA SUSPENSION/INJ [Suspect]
     Dosage: FREQ:MOST RECENT INJECTION
     Route: 030
     Dates: start: 20071211, end: 20071211
  5. SUMATRIPTAN SUCCINATE [Concomitant]
     Dosage: DAILY DOSE:50MG-FREQ:DAILY
     Route: 048

REACTIONS (2)
  - APNOEA [None]
  - DYSPHEMIA [None]
